FAERS Safety Report 4443565-6 (Version None)
Quarter: 2004Q3

REPORT INFORMATION
  Report Type: 
  Country: None (occurrence: None)
  Receive Date: 20040908
  Receipt Date: 20040902
  Transmission Date: 20050211
  Serious: Yes (Hospitalization)
  Sender: FDA-Public Use
  Company Number: 200413269FR

PATIENT
  Age: 57 Year
  Sex: Male
  Weight: 70 kg

DRUGS (17)
  1. FLAGYL [Suspect]
     Dates: start: 20040719, end: 20040726
  2. TAZOCILLINE [Suspect]
     Dates: start: 20040719, end: 20040726
  3. CELLCEPT [Suspect]
     Dates: start: 20040720, end: 20040726
  4. LASIX [Concomitant]
  5. TOPALGIC [Concomitant]
  6. CIPROFLOXACIN [Concomitant]
  7. TRIFLUCAN [Concomitant]
  8. VALACYCLOVIR HCL [Concomitant]
  9. SOLU-MEDROL [Concomitant]
  10. PROGRAF [Concomitant]
  11. URSOLVAN-200 [Concomitant]
  12. CATAPRES [Concomitant]
  13. INSULIN [Concomitant]
  14. VITAMIN K TAB [Concomitant]
  15. OMEPRAZOLE [Concomitant]
  16. CAPTOPRIL [Concomitant]
  17. LOXEN [Concomitant]

REACTIONS (1)
  - THROMBOCYTOPENIA [None]
